APPROVED DRUG PRODUCT: AMILORIDE HYDROCHLORIDE AND HYDROCHLOROTHIAZIDE
Active Ingredient: AMILORIDE HYDROCHLORIDE; HYDROCHLOROTHIAZIDE
Strength: EQ 5MG ANHYDROUS;50MG
Dosage Form/Route: TABLET;ORAL
Application: A071111 | Product #001 | TE Code: AB
Applicant: BARR LABORATORIES INC
Approved: May 10, 1988 | RLD: No | RS: No | Type: RX